FAERS Safety Report 21982257 (Version 1)
Quarter: 2023Q1

REPORT INFORMATION
  Report Type: Spontaneous
  Country: CO (occurrence: CO)
  Receive Date: 20230213
  Receipt Date: 20230213
  Transmission Date: 20230417
  Serious: Yes (Death)
  Sender: FDA-Public Use
  Company Number: CO-NOVOPROD-1021120

PATIENT
  Sex: Female

DRUGS (1)
  1. NOVOSEVEN RT [Suspect]
     Active Substance: COAGULATION FACTOR VIIA RECOMBINANT HUMAN
     Indication: Haemorrhage in pregnancy
     Dosage: UNK

REACTIONS (3)
  - Haemorrhage in pregnancy [Fatal]
  - Off label use [Unknown]
  - Maternal exposure during pregnancy [Recovered/Resolved]
